FAERS Safety Report 9531296 (Version 1)
Quarter: 2013Q3

REPORT INFORMATION
  Report Type: Spontaneous
  Country: US (occurrence: None)
  Receive Date: 20130916
  Receipt Date: 20130916
  Transmission Date: 20140515
  Serious: Yes (Life-Threatening, Hospitalization, Disabling, Other)
  Sender: FDA-Public Use
  Company Number: None

PATIENT
  Age: 70 Year
  Sex: Male
  Weight: 81.65 kg

DRUGS (1)
  1. DEPAKOTE [Suspect]
     Indication: COMPLEX PARTIAL SEIZURES
     Dosage: 750 MG, QAM AND 500MG QPM
     Route: 048
     Dates: start: 200903, end: 201308

REACTIONS (3)
  - Parkinson^s disease [None]
  - Asthenia [None]
  - Toxicity to various agents [None]
